FAERS Safety Report 7901151-7 (Version None)
Quarter: 2011Q4

REPORT INFORMATION
  Report Type: 
  Country: None (occurrence: None)
  Receive Date: 20111108
  Receipt Date: 20111103
  Transmission Date: 20120403
  Serious: Yes (Hospitalization, Congenital Anomaly, Other)
  Sender: FDA-Public Use
  Company Number: US-PFIZER INC-2011237679

PATIENT
  Sex: Female
  Weight: 3.85 kg

DRUGS (5)
  1. ZOLOFT [Suspect]
     Indication: PANIC ATTACK
     Dosage: 50 MG, 1X/DAY
     Route: 064
  2. ZOLOFT [Suspect]
     Indication: DEPRESSION
     Dosage: 25 MG, 1X/DAY
     Route: 064
     Dates: end: 19970603
  3. ZOLOFT [Suspect]
     Dosage: 25 MG, ALTERNATE DAY
     Route: 064
  4. TRIMOX [Concomitant]
     Indication: SINUSITIS
     Dosage: 500 MG, 3X/DAY
     Route: 064
     Dates: start: 19970602
  5. MULTI-VITAMINS [Concomitant]
     Dosage: UNK
     Route: 064

REACTIONS (11)
  - ARNOLD-CHIARI MALFORMATION [None]
  - JUVENILE ARTHRITIS [None]
  - PATENT DUCTUS ARTERIOSUS [None]
  - HYDROMYELIA [None]
  - KYPHOSCOLIOSIS [None]
  - AMNESIA [None]
  - MATERNAL EXPOSURE TIMING UNSPECIFIED [None]
  - PULMONARY VALVE STENOSIS [None]
  - PLATYBASIA [None]
  - FALLOT'S TETRALOGY [None]
  - VENTRICULAR SEPTAL DEFECT [None]
